FAERS Safety Report 13895737 (Version 1)
Quarter: 2017Q3

REPORT INFORMATION
  Report Type: Spontaneous
  Country: US (occurrence: US)
  Receive Date: 20170823
  Receipt Date: 20170823
  Transmission Date: 20171127
  Serious: No
  Sender: FDA-Public Use
  Company Number: US-PFIZER INC-2017362710

PATIENT
  Age: 45 Year
  Sex: Female

DRUGS (1)
  1. XELJANZ XR [Suspect]
     Active Substance: TOFACITINIB CITRATE
     Dosage: 11 MG, DAILY

REACTIONS (7)
  - Joint swelling [Unknown]
  - Anxiety [Unknown]
  - Memory impairment [Unknown]
  - Fatigue [Unknown]
  - Sleep disorder [Unknown]
  - Arthralgia [Recovering/Resolving]
  - Malaise [Unknown]
